FAERS Safety Report 9688439 (Version 2)
Quarter: 2013Q4

REPORT INFORMATION
  Report Type: Spontaneous
  Country: US (occurrence: US)
  Receive Date: 20131114
  Receipt Date: 20131204
  Transmission Date: 20140711
  Serious: Yes (Other)
  Sender: FDA-Public Use
  Company Number: US-LUNDBECK-DKLU1095129

PATIENT
  Age: 10 Year
  Sex: Female

DRUGS (9)
  1. SABRIL (TABLET) [Suspect]
     Indication: PRODUCT USED FOR UNKNOWN INDICATION
  2. RISPERDAL [Suspect]
     Indication: ABNORMAL BEHAVIOUR
     Dates: start: 20131008
  3. RISPERDAL [Suspect]
  4. RISPERDAL [Suspect]
  5. ONFI [Concomitant]
     Indication: PRODUCT USED FOR UNKNOWN INDICATION
  6. FELBAMATE [Concomitant]
     Indication: PRODUCT USED FOR UNKNOWN INDICATION
  7. DEPAKOTE [Concomitant]
     Indication: PRODUCT USED FOR UNKNOWN INDICATION
  8. LEVOCARNITINE [Concomitant]
     Indication: PRODUCT USED FOR UNKNOWN INDICATION
  9. LEVOCARNITINE [Concomitant]

REACTIONS (2)
  - Depressed level of consciousness [Recovered/Resolved]
  - Feeling abnormal [Recovered/Resolved]
